FAERS Safety Report 23146946 (Version 2)
Quarter: 2024Q4

REPORT INFORMATION
  Report Type: Report from Study
  Country: BR (occurrence: BR)
  Receive Date: 20231106
  Receipt Date: 20241222
  Transmission Date: 20250114
  Serious: Yes (Hospitalization, Other)
  Sender: JOHNSON AND JOHNSON
  Company Number: BR-BAYER-2023A139238

PATIENT
  Age: 44 Year
  Sex: Female

DRUGS (29)
  1. VENTAVIS [Suspect]
     Active Substance: ILOPROST
     Indication: Pulmonary hypertension
     Dosage: UNK (HALF VIAL EACH 3 HOURS   )
     Route: 065
     Dates: start: 202310, end: 202401
  2. XARELTO [Suspect]
     Active Substance: RIVAROXABAN
     Indication: Thrombosis prophylaxis
     Dosage: UNK
     Route: 048
     Dates: start: 201412, end: 201504
  3. ADEMPAS [Suspect]
     Active Substance: RIOCIGUAT
     Indication: Pulmonary hypertension
     Dosage: 1 DF, Q8HR
     Route: 048
     Dates: start: 202206
  4. AMOXICILLIN [Concomitant]
     Active Substance: AMOXICILLIN
     Indication: Bacterial infection
     Dosage: 200 MG, QD
     Dates: start: 20230812, end: 20230822
  5. AZITROMICIL [Concomitant]
     Indication: Bacterial infection
     Dosage: 100 MG, QD
     Dates: start: 20230812, end: 20230822
  6. INILOK [Concomitant]
     Indication: Product used for unknown indication
     Dosage: UNK
     Dates: start: 202308, end: 202308
  7. ONDANSETRON HYDROCHLORIDE [Concomitant]
     Active Substance: ONDANSETRON HYDROCHLORIDE
     Indication: Vomiting
     Dosage: UNK
     Dates: start: 2015
  8. IRON POLYMALTOSE [Concomitant]
     Active Substance: IRON POLYMALTOSE
     Indication: Iron deficiency anaemia
     Dosage: 2 DF, QD
     Dates: start: 20230910
  9. ELECTROLYTE SOLUTIONS [ELECTROLYTES NOS] [Concomitant]
     Indication: Product used for unknown indication
     Dosage: UNK
     Dates: start: 202308
  10. DOLUTEGRAVIR [Concomitant]
     Active Substance: DOLUTEGRAVIR
     Indication: HIV infection
     Dosage: 1 DF, QD
  11. LAMIVUDINE [Concomitant]
     Active Substance: LAMIVUDINE
     Indication: HIV infection
     Dosage: 2 DF, QD
  12. FUROSEMIDE [Concomitant]
     Active Substance: FUROSEMIDE
     Indication: Fluid retention
     Dosage: 2 DF, QD
     Dates: start: 2015
  13. ALDACTONE [Concomitant]
     Active Substance: SPIRONOLACTONE
     Indication: Oedema
     Dosage: 1 DF, QD
  14. CHLORTHALIDONE [Concomitant]
     Active Substance: CHLORTHALIDONE
     Indication: Fluid retention
     Dosage: 1 DF, QD
  15. ZOLFEST D [Concomitant]
     Indication: Insomnia
     Dosage: 10 MG, QD
  16. DIENOGEST [Concomitant]
     Active Substance: DIENOGEST
     Indication: Contraception
     Dosage: 1 DF, QD
  17. BUDESONIDE\FORMOTEROL FUMARATE [Concomitant]
     Active Substance: BUDESONIDE\FORMOTEROL FUMARATE
     Indication: Pulmonary hypertension
     Dosage: UNK UNK, BID
  18. AMBRISENTAN [Concomitant]
     Active Substance: AMBRISENTAN
     Indication: Pulmonary hypertension
     Dosage: 1 DF, QD
  19. VIAGRA L [Concomitant]
     Indication: Pulmonary hypertension
  20. WARFARIN SODIUM [Concomitant]
     Active Substance: WARFARIN SODIUM
     Indication: Embolism
     Dosage: 7.5 MG, QD
     Dates: start: 201504
  21. ALLOPURINOL [Concomitant]
     Active Substance: ALLOPURINOL
     Indication: Product used for unknown indication
     Dosage: UNK
     Dates: start: 202308, end: 202310
  22. COLCHICINE [Concomitant]
     Active Substance: COLCHICINE
     Indication: Gout
     Dosage: 1 DF, QD
     Dates: start: 202308, end: 202308
  23. DIOSMIN [Concomitant]
     Active Substance: DIOSMIN
     Indication: Anal haemorrhage
     Dosage: 1 DF, QD
     Dates: start: 202309
  24. NISTATIN [Concomitant]
     Active Substance: NYSTATIN
     Indication: Tongue injury
  25. CIPROFLOXACIN [Concomitant]
     Active Substance: CIPROFLOXACIN
     Indication: Bacterial infection
     Dosage: ORAL AND INTRAVENOUS
     Dates: start: 20231023, end: 20231028
  26. VANCOMYCIN [Concomitant]
     Active Substance: VANCOMYCIN
     Indication: Bacterial infection
     Dosage: UNK
     Dates: start: 20231028, end: 20231031
  27. METRONIDAZOLE [Concomitant]
     Active Substance: METRONIDAZOLE
     Indication: Bacterial infection
     Dosage: 500 MG, Q8HR
     Dates: start: 20231031
  28. ESCITALOPRAM [Concomitant]
     Active Substance: ESCITALOPRAM OXALATE
     Indication: Panic disorder
     Dosage: 1 TABLET OF 10MG/DAY
     Dates: start: 20240116
  29. ALPRAZOLAM [Concomitant]
     Active Substance: ALPRAZOLAM
     Indication: Insomnia
     Dosage: UNK

REACTIONS (26)
  - Asthenia [Not Recovered/Not Resolved]
  - Decreased appetite [Not Recovered/Not Resolved]
  - Cardiac failure [Unknown]
  - Gastric infection [Unknown]
  - Renal disorder [Not Recovered/Not Resolved]
  - Cardiac disorder [Not Recovered/Not Resolved]
  - Fluid retention [Unknown]
  - Pain in extremity [Not Recovered/Not Resolved]
  - Peripheral swelling [Not Recovered/Not Resolved]
  - Glossodynia [Unknown]
  - Rhinalgia [Not Recovered/Not Resolved]
  - Erythema [Not Recovered/Not Resolved]
  - Nasal discomfort [Not Recovered/Not Resolved]
  - Oropharyngeal pain [Unknown]
  - Hyponatraemia [Unknown]
  - Respiratory alkalosis [Unknown]
  - Blood calcium decreased [Not Recovered/Not Resolved]
  - Helicobacter infection [Unknown]
  - Panic disorder [Recovering/Resolving]
  - Initial insomnia [Unknown]
  - Insomnia [Unknown]
  - Cough [Unknown]
  - Blood pressure decreased [Unknown]
  - Pulmonary arterial pressure increased [Unknown]
  - Off label use [Unknown]
  - Swelling [Unknown]

NARRATIVE: CASE EVENT DATE: 20231001
